FAERS Safety Report 8883859 (Version 2)
Quarter: 2014Q1

REPORT INFORMATION
  Report Type: Spontaneous
  Country: US (occurrence: US)
  Receive Date: 20121102
  Receipt Date: 20140121
  Transmission Date: 20141002
  Serious: No
  Sender: FDA-Public Use
  Company Number: US-ASTRAZENECA-2012SE08917

PATIENT
  Age: 60 Year
  Sex: Male
  Weight: 96.2 kg

DRUGS (9)
  1. LISINOPRIL [Suspect]
     Indication: BLOOD PRESSURE
     Route: 048
  2. CRESTOR [Suspect]
     Indication: BLOOD CHOLESTEROL
     Route: 048
     Dates: end: 201312
  3. CLOPIDOGREL [Concomitant]
     Indication: HYPERTENSION
  4. CLOPIDOGREL [Concomitant]
     Indication: BLOOD CHOLESTEROL
  5. FUROSEMIDE [Concomitant]
     Indication: BLOOD PRESSURE
  6. FENOFIBRATE [Concomitant]
  7. GLIMEPIRIDE [Concomitant]
     Indication: BLOOD CHOLESTEROL
  8. GLIMEPIRIDE [Concomitant]
     Indication: BLOOD PRESSURE
  9. LEVEMIR [Concomitant]
     Indication: BLOOD INSULIN DECREASED

REACTIONS (4)
  - Body height decreased [Unknown]
  - Blood glucose increased [Unknown]
  - Blood cholesterol increased [Unknown]
  - Drug dose omission [Unknown]
